FAERS Safety Report 7382251-X (Version None)
Quarter: 2011Q1

REPORT INFORMATION
  Report Type: 
  Country: None (occurrence: None)
  Receive Date: 20110329
  Receipt Date: 20110121
  Transmission Date: 20110831
  Serious: Yes (Hospitalization, Other)
  Sender: FDA-Public Use
  Company Number: US-BAYER-2011-025097

PATIENT
  Sex: Female
  Weight: 82 kg

DRUGS (5)
  1. YASMIN [Suspect]
  2. PERCOCET [Concomitant]
     Indication: PAIN
  3. ZOLOFT [Concomitant]
  4. METFORMIN HCL [Concomitant]
  5. ADVIL LIQUI-GELS [Concomitant]

REACTIONS (4)
  - CHOLESTEROSIS [None]
  - CHOLELITHIASIS [None]
  - CHOLECYSTITIS CHRONIC [None]
  - GALLBLADDER DISORDER [None]
